FAERS Safety Report 19641752 (Version 3)
Quarter: 2021Q4

REPORT INFORMATION
  Report Type: Spontaneous
  Country: CA (occurrence: CA)
  Receive Date: 20210731
  Receipt Date: 20211204
  Transmission Date: 20220303
  Serious: Yes (Hospitalization, Other)
  Sender: FDA-Public Use
  Company Number: CA-AUROBINDO-AUR-APL-2021-032465

PATIENT
  Age: 19 Month
  Sex: Male

DRUGS (2)
  1. LEVETIRACETAM [Suspect]
     Active Substance: LEVETIRACETAM
     Indication: Epilepsy
     Dosage: UNK
     Route: 065
  2. CLOBAZAM [Concomitant]
     Active Substance: CLOBAZAM
     Indication: Product used for unknown indication
     Dosage: 0.6 MILLIGRAM/KILOGRAM, ONCE A DAY
     Route: 065

REACTIONS (2)
  - Drug ineffective [Unknown]
  - Epilepsy [Unknown]
